FAERS Safety Report 11052830 (Version 2)
Quarter: 2015Q2

REPORT INFORMATION
  Report Type: Spontaneous
  Country: DE (occurrence: DE)
  Receive Date: 20150421
  Receipt Date: 20150428
  Transmission Date: 20150821
  Serious: Yes (Life-Threatening)
  Sender: FDA-Public Use
  Company Number: GXKR2015DE002040

PATIENT
  Age: 68 Year
  Sex: Female

DRUGS (4)
  1. CLARITHROMYCIN. [Suspect]
     Active Substance: CLARITHROMYCIN
     Indication: INFECTION
     Dosage: 250 MG, BID
     Route: 048
  2. PIPERACILLIN AND TAZOBACTAM [Suspect]
     Active Substance: PIPERACILLIN SODIUM\TAZOBACTAM SODIUM
     Indication: INFECTION
     Dosage: 4.5 G, QID
     Route: 042
  3. CHEMOTHERAPEUTICS NOS [Concomitant]
     Active Substance: UNSPECIFIED INGREDIENT
  4. TORASEMIDE [Suspect]
     Active Substance: TORSEMIDE
     Dosage: 10 MG, QD
     Route: 048

REACTIONS (7)
  - Torsade de pointes [Recovered/Resolved]
  - Syncope [Recovered/Resolved]
  - Hypokalaemia [Recovered/Resolved]
  - Electrocardiogram QT prolonged [Recovering/Resolving]
  - Ventricular fibrillation [Recovered/Resolved]
  - Ventricular extrasystoles [Recovered/Resolved]
  - Cardiac arrest [Recovered/Resolved]
